FAERS Safety Report 16218438 (Version 2)
Quarter: 2019Q3

REPORT INFORMATION
  Report Type: Spontaneous
  Country: US (occurrence: US)
  Receive Date: 20190419
  Receipt Date: 20190723
  Transmission Date: 20191004
  Serious: Yes (Other)
  Sender: FDA-Public Use
  Company Number: US-GILEAD-2019-0402773

PATIENT
  Age: 66 Year
  Sex: Male
  Weight: 79.09 kg

DRUGS (8)
  1. SCHISANDRA [Concomitant]
  2. TURMERIC CURCUMIN [CURCUMA LONGA RHIZOME] [Concomitant]
  3. SPIRULINA BIOSERRANA [Concomitant]
  4. GARLIC NATURAL [Concomitant]
  5. HARVONI [Suspect]
     Active Substance: LEDIPASVIR\SOFOSBUVIR
     Indication: CHRONIC HEPATITIS C
     Dosage: 1 DOSAGE FORM
     Route: 065
     Dates: start: 20150205, end: 20150430
  6. TAURINE [Concomitant]
     Active Substance: TAURINE
  7. LISINOPRIL. [Concomitant]
     Active Substance: LISINOPRIL
  8. FISH OIL [Concomitant]
     Active Substance: FISH OIL

REACTIONS (2)
  - Hepatitis C [Unknown]
  - Treatment failure [Unknown]
